FAERS Safety Report 15598229 (Version 4)
Quarter: 2018Q4

REPORT INFORMATION
  Report Type: Spontaneous
  Country: FR (occurrence: FR)
  Receive Date: 20181108
  Receipt Date: 20181227
  Transmission Date: 20190205
  Serious: Yes (Hospitalization, Other)
  Sender: FDA-Public Use
  Company Number: FR-SA-2018SA304635

PATIENT
  Age: 7 Year
  Sex: Female

DRUGS (1)
  1. CEREZYME [Suspect]
     Active Substance: IMIGLUCERASE
     Dosage: 160 UI/KG; EVERY OTHER WEEKS
     Route: 041
     Dates: start: 20161125

REACTIONS (6)
  - Joint swelling [Recovered/Resolved]
  - Osteonecrosis [Recovered/Resolved]
  - Bone pain [Recovered/Resolved]
  - Therapy non-responder [Unknown]
  - Chitotriosidase increased [Unknown]
  - Antibody test positive [Unknown]

NARRATIVE: CASE EVENT DATE: 201809
